FAERS Safety Report 8552391-8 (Version None)
Quarter: 2012Q3

REPORT INFORMATION
  Report Type: 
  Country: None (occurrence: None)
  Receive Date: 20120731
  Receipt Date: 20120720
  Transmission Date: 20120928
  Serious: Yes (Hospitalization)
  Sender: FDA-Public Use
  Company Number: IT-GENZYME-POMP-1002331

PATIENT
  Sex: Female

DRUGS (1)
  1. MYOZYME [Suspect]
     Indication: GLYCOGEN STORAGE DISEASE TYPE II
     Dosage: CYCLICAL, Q/2K
     Route: 042
     Dates: start: 20111001

REACTIONS (1)
  - RESPIRATORY DISORDER [None]
